FAERS Safety Report 8857165 (Version 2)
Quarter: 2012Q4

REPORT INFORMATION
  Report Type: 
  Country: CA (occurrence: CA)
  Receive Date: 20121024
  Receipt Date: 20121101
  Transmission Date: 20130627
  Serious: Yes (Hospitalization)
  Sender: FDA-Public Use
  Company Number: CA-ASTRAZENECA-2012SE78967

PATIENT
  Age: 45 Year
  Sex: Male

DRUGS (2)
  1. NEXIUM [Suspect]
     Route: 048
     Dates: start: 20120622
  2. NEXIUM [Suspect]
     Route: 048

REACTIONS (1)
  - Nervous system disorder [Not Recovered/Not Resolved]
